FAERS Safety Report 18390943 (Version 1)
Quarter: 2020Q4

REPORT INFORMATION
  Report Type: Spontaneous
  Country: US (occurrence: US)
  Receive Date: 20201015
  Receipt Date: 20201015
  Transmission Date: 20210114
  Serious: Yes (Death, Life-Threatening)
  Sender: FDA-Public Use
  Company Number: None

PATIENT
  Age: 66 Year
  Sex: Female
  Weight: 125 kg

DRUGS (1)
  1. MIRCERA [Suspect]
     Active Substance: METHOXY POLYETHYLENE GLYCOL-EPOETIN BETA
     Indication: ANAEMIA
     Dosage: ?          OTHER ROUTE:INTRAVENOUS PUSH?
     Route: 042
     Dates: start: 20200925, end: 20200925

REACTIONS (6)
  - Palpitations [None]
  - Heart rate decreased [None]
  - Loss of consciousness [None]
  - Blood pressure decreased [None]
  - Cardio-respiratory arrest [None]
  - Unresponsive to stimuli [None]

NARRATIVE: CASE EVENT DATE: 20200925
